APPROVED DRUG PRODUCT: LEUCOVORIN CALCIUM
Active Ingredient: LEUCOVORIN CALCIUM
Strength: EQ 500MG BASE/50ML (EQ 10MG BASE/ML)
Dosage Form/Route: SOLUTION;INTRAMUSCULAR, INTRAVENOUS
Application: A210917 | Product #001
Applicant: NOVAST LABORATORIES LTD
Approved: Nov 23, 2018 | RLD: No | RS: No | Type: DISCN